FAERS Safety Report 4530619-9 (Version None)
Quarter: 2004Q4

REPORT INFORMATION
  Report Type: 
  Country: None (occurrence: None)
  Receive Date: 20041217
  Receipt Date: 20041217
  Transmission Date: 20050328
  Serious: Yes (Hospitalization, Other)
  Sender: FDA-Public Use
  Company Number: None

PATIENT
  Sex: Male
  Weight: 96.6162 kg

DRUGS (1)
  1. GATIFLOXACIN [Suspect]
     Indication: CELLULITIS
     Dosage: 400MG  DAILY ORAL
     Route: 048
     Dates: start: 20041029, end: 20041029

REACTIONS (3)
  - HYPOGLYCAEMIA [None]
  - HYPOTENSION [None]
  - LOSS OF CONSCIOUSNESS [None]
